FAERS Safety Report 8433802-5 (Version None)
Quarter: 2012Q2

REPORT INFORMATION
  Report Type: 
  Country: None (occurrence: None)
  Receive Date: 20120613
  Receipt Date: 20120608
  Transmission Date: 20120825
  Serious: Yes (Other)
  Sender: FDA-Public Use
  Company Number: US-PFIZER INC-2012138522

PATIENT
  Sex: Female
  Weight: 130.6 kg

DRUGS (3)
  1. MULTI-VITAMINS [Suspect]
     Indication: ASTHENIA
     Dosage: UNK
     Dates: start: 20110101
  2. LEUCOVORIN CALCIUM [Suspect]
     Indication: ASTHENIA
     Dosage: UNK
     Dates: start: 20110101
  3. IRON [Suspect]
     Indication: ASTHENIA
     Dosage: UNK
     Dates: start: 20110101

REACTIONS (8)
  - ABDOMINAL DISTENSION [None]
  - WEIGHT INCREASED [None]
  - SWELLING [None]
  - OEDEMA PERIPHERAL [None]
  - MUSCULOSKELETAL STIFFNESS [None]
  - ABDOMINAL DISCOMFORT [None]
  - ABASIA [None]
  - JOINT STIFFNESS [None]
